FAERS Safety Report 6409249-X (Version None)
Quarter: 2009Q4

REPORT INFORMATION
  Report Type: 
  Country: None (occurrence: None)
  Receive Date: 20091019
  Receipt Date: 20091019
  Transmission Date: 20100525
  Serious: Yes (Other)
  Sender: FDA-Public Use
  Company Number: None

PATIENT
  Age: 55 Year
  Sex: Male
  Weight: 79.3795 kg

DRUGS (1)
  1. NASALIDE [Suspect]
     Dates: start: 20080125, end: 20090125

REACTIONS (2)
  - AGEUSIA [None]
  - ANOSMIA [None]
